FAERS Safety Report 8909912 (Version 1)
Quarter: 2012Q4

REPORT INFORMATION
  Report Type: 
  Country: US (occurrence: US)
  Receive Date: 20121115
  Receipt Date: 20121115
  Transmission Date: 20130627
  Serious: No
  Sender: FDA-Public Use
  Company Number: US-PFIZER INC-2012283814

PATIENT
  Age: 74 Year
  Sex: Female

DRUGS (1)
  1. INLYTA [Suspect]
     Indication: KIDNEY CANCER
     Dosage: 58 mg, 2x/day
     Dates: start: 20120809

REACTIONS (2)
  - Disease progression [Unknown]
  - Renal cancer [Unknown]
